FAERS Safety Report 9166705 (Version 1)
Quarter: 2013Q1

REPORT INFORMATION
  Report Type: Report from Study
  Country: US (occurrence: US)
  Receive Date: 20130315
  Receipt Date: 20130315
  Transmission Date: 20140127
  Serious: Yes (Other)
  Sender: FDA-Public Use
  Company Number: US-RB-018337-10

PATIENT
  Age: 49 Year
  Sex: Female
  Weight: 145 kg

DRUGS (3)
  1. SUBOXONE FILM [Suspect]
     Indication: PAIN
     Dosage: SUBOXONE FILM. PATIENT STATES SHE USED ONE FULL STRIP DAILY, CUTTING THEM INTO SLIVERS.
     Route: 065
     Dates: start: 2010
  2. SUBOXONE FILM [Suspect]
     Indication: PAIN
     Dosage: SUBOXONE FILM. PATIENT STATES SHE USED ONE FULL STRIP DAILY, CUTTING THEM INTO SLIVERS.
     Route: 065
     Dates: start: 2010
  3. ATIVAN [Concomitant]
     Indication: PRODUCT USED FOR UNKNOWN INDICATION
     Dosage: DOSING DETAILS UNKNOWN
     Route: 065

REACTIONS (19)
  - Burning sensation [Not Recovered/Not Resolved]
  - Disorientation [Not Recovered/Not Resolved]
  - Rash [Not Recovered/Not Resolved]
  - Swelling face [Recovered/Resolved]
  - Haematemesis [Unknown]
  - Decreased appetite [Recovered/Resolved]
  - Vomiting [Not Recovered/Not Resolved]
  - Paraesthesia [Not Recovered/Not Resolved]
  - Fluid intake reduced [Recovered/Resolved]
  - Dehydration [Not Recovered/Not Resolved]
  - Aphasia [Recovered/Resolved]
  - Anxiety [Not Recovered/Not Resolved]
  - Nausea [Not Recovered/Not Resolved]
  - Crying [Not Recovered/Not Resolved]
  - Weight decreased [Not Recovered/Not Resolved]
  - Alopecia [Unknown]
  - Off label use [Recovered/Resolved]
  - Wrong technique in drug usage process [Recovered/Resolved]
  - Pruritus [Not Recovered/Not Resolved]
